FAERS Safety Report 9556906 (Version 1)
Quarter: 2013Q3

REPORT INFORMATION
  Report Type: Spontaneous
  Country: US (occurrence: US)
  Receive Date: 20130926
  Receipt Date: 20130926
  Transmission Date: 20140515
  Serious: Yes (Hospitalization)
  Sender: FDA-Public Use
  Company Number: US-PFIZER INC-2013276109

PATIENT
  Age: 72 Year
  Sex: Female
  Weight: 50.34 kg

DRUGS (7)
  1. LYRICA [Suspect]
     Indication: DIABETIC NEUROPATHY
     Dosage: 100 MG, 3X/DAY
     Route: 048
  2. LYRICA [Suspect]
     Indication: SCIATIC NERVE INJURY
     Dosage: 100 MG, 1X/DAY
     Route: 048
  3. LYRICA [Suspect]
     Dosage: 100 MG, 3X/DAY
     Route: 048
  4. GLIBURIDE/METFORMIN HYDROCHLORIDE [Concomitant]
     Indication: DIABETES MELLITUS
     Dosage: UNK
  5. LEVOTHYROXINE [Concomitant]
     Indication: HYPOTHYROIDISM
     Dosage: UNK
  6. NADOLOL [Concomitant]
     Indication: PORTAL VEIN PRESSURE INCREASED
     Dosage: 40 MG, UNK
  7. SPIRONOLACTONE [Concomitant]
     Dosage: UNK

REACTIONS (4)
  - Off label use [Unknown]
  - Unresponsive to stimuli [Unknown]
  - Drug ineffective [Unknown]
  - Oedema peripheral [Unknown]
